FAERS Safety Report 8220428-1 (Version None)
Quarter: 2012Q1

REPORT INFORMATION
  Report Type: 
  Country: None (occurrence: None)
  Receive Date: 20120313
  Receipt Date: 20120306
  Transmission Date: 20120608
  Serious: Yes (Death)
  Sender: FDA-Public Use
  Company Number: A0969031A

PATIENT
  Age: 54 Year
  Sex: Male

DRUGS (5)
  1. DEXAMETHASONE [Suspect]
     Indication: BRAIN OEDEMA
  2. PYRIMETHAMINE TAB [Suspect]
     Indication: CEREBRAL TOXOPLASMOSIS
  3. DAPSONE [Suspect]
     Indication: INFECTION PROPHYLAXIS
  4. CLINDAMYCIN [Suspect]
     Indication: CEREBRAL TOXOPLASMOSIS
  5. ATOVAQUONE [Concomitant]

REACTIONS (8)
  - EYE SWELLING [None]
  - PANCYTOPENIA [None]
  - EXOPHTHALMOS [None]
  - BLINDNESS UNILATERAL [None]
  - ZYGOMYCOSIS [None]
  - TOXICITY TO VARIOUS AGENTS [None]
  - EYELID PTOSIS [None]
  - OPHTHALMOPLEGIA [None]
